FAERS Safety Report 15508764 (Version 1)
Quarter: 2018Q4

REPORT INFORMATION
  Report Type: Spontaneous
  Country: US (occurrence: US)
  Receive Date: 20181016
  Receipt Date: 20181016
  Transmission Date: 20190205
  Serious: Yes (Other)
  Sender: FDA-Public Use
  Company Number: None

PATIENT
  Sex: Female
  Weight: 89.1 kg

DRUGS (20)
  1. TYKERB [Suspect]
     Active Substance: LAPATINIB DITOSYLATE
     Indication: NEOPLASM MALIGNANT
     Route: 048
     Dates: start: 20180615, end: 20181016
  2. SENNA PLUS [Concomitant]
     Active Substance: DOCUSATE SODIUM\SENNOSIDES\SENNOSIDES A AND B
  3. ASPIRIN EC LOW STRENGTH [Concomitant]
     Active Substance: ASPIRIN
  4. LEVEMIR [Concomitant]
     Active Substance: INSULIN DETEMIR
  5. COQ10 OMEGA 3 FISH OIL [Concomitant]
  6. OXYCODONE HYDROCHLORIDE. [Concomitant]
     Active Substance: OXYCODONE HYDROCHLORIDE
  7. CYMBALTA [Concomitant]
     Active Substance: DULOXETINE HYDROCHLORIDE
  8. LETROZOLE. [Concomitant]
     Active Substance: LETROZOLE
  9. CALCIUM 600+D HIGH POTENCY [Concomitant]
  10. METFORMIN HYDROCHLORIDE. [Concomitant]
     Active Substance: METFORMIN HYDROCHLORIDE
  11. REMERON [Concomitant]
     Active Substance: MIRTAZAPINE
  12. TAMSULOSIN HCL [Concomitant]
     Active Substance: TAMSULOSIN HYDROCHLORIDE
  13. NEURONTIN [Concomitant]
     Active Substance: GABAPENTIN
  14. MELATONIN [Concomitant]
     Active Substance: MELATONIN
  15. ATORVASTATIN [Concomitant]
     Active Substance: ATORVASTATIN
  16. NOVOLOG [Concomitant]
     Active Substance: INSULIN ASPART
  17. CLARITIN [Concomitant]
     Active Substance: LORATADINE
  18. LASIX [Concomitant]
     Active Substance: FUROSEMIDE
  19. COREG [Concomitant]
     Active Substance: CARVEDILOL
  20. BACLOFEN. [Concomitant]
     Active Substance: BACLOFEN

REACTIONS (3)
  - Decubitus ulcer [None]
  - Paronychia [None]
  - Cellulitis [None]
